FAERS Safety Report 8408019-0 (Version None)
Quarter: 2012Q2

REPORT INFORMATION
  Report Type: 
  Country: None (occurrence: None)
  Receive Date: 20120601
  Receipt Date: 20120601
  Transmission Date: 20120825
  Serious: No
  Sender: FDA-Public Use
  Company Number: None

PATIENT
  Sex: Female

DRUGS (2)
  1. PEGASYS [Suspect]
     Indication: HEPATITIS C
     Dosage: 180MCG WEEKLY SQ
     Route: 058
     Dates: start: 20120228, end: 20120530
  2. RIBAVIRIN [Suspect]
     Indication: HEPATITIS C
     Dosage: 400MG BID PO
     Route: 048
     Dates: start: 20120228, end: 20120530

REACTIONS (2)
  - THROMBOSIS [None]
  - MOUTH ULCERATION [None]
